FAERS Safety Report 8405848-4 (Version None)
Quarter: 2012Q2

REPORT INFORMATION
  Report Type: 
  Country: None (occurrence: None)
  Receive Date: 20120604
  Receipt Date: 20120601
  Transmission Date: 20120825
  Serious: Yes (Other)
  Sender: FDA-Public Use
  Company Number: US-PFIZER INC-2012132634

PATIENT
  Sex: Female
  Weight: 61.224 kg

DRUGS (3)
  1. CHANTIX [Suspect]
     Dosage: 0.5 MG, 2X/DAY
     Dates: start: 20120501, end: 20120501
  2. CHANTIX [Suspect]
     Indication: SMOKING CESSATION THERAPY
     Dosage: 0.5 MG, DAILY
     Dates: start: 20120521, end: 20120501
  3. CHANTIX [Suspect]
     Dosage: UNK
     Dates: start: 20120501, end: 20120526

REACTIONS (7)
  - AGITATION [None]
  - INSOMNIA [None]
  - RASH GENERALISED [None]
  - SUICIDAL IDEATION [None]
  - NAUSEA [None]
  - NIGHTMARE [None]
  - MANIA [None]
